FAERS Safety Report 9211478 (Version 1)
Quarter: 2013Q2

REPORT INFORMATION
  Report Type: Spontaneous
  Country: US (occurrence: US)
  Receive Date: 20130404
  Receipt Date: 20130404
  Transmission Date: 20140414
  Serious: No
  Sender: FDA-Public Use
  Company Number: US-AMGEN-USASP2013016948

PATIENT
  Age: 25 Year
  Sex: Female

DRUGS (1)
  1. ENBREL [Suspect]
     Indication: PSORIATIC ARTHROPATHY
     Dosage: 50 MG, QWK
     Dates: start: 20120426

REACTIONS (2)
  - Dental caries [Not Recovered/Not Resolved]
  - Toothache [Not Recovered/Not Resolved]
